FAERS Safety Report 6632440-4 (Version None)
Quarter: 2010Q1

REPORT INFORMATION
  Report Type: 
  Country: None (occurrence: None)
  Receive Date: 20100312
  Receipt Date: 20090615
  Transmission Date: 20100710
  Serious: Yes (Other)
  Sender: FDA-Public Use
  Company Number: 2009BI012853

PATIENT
  Sex: Female

DRUGS (1)
  1. AVONEX [Suspect]
     Indication: MULTIPLE SCLEROSIS
     Route: 030
     Dates: start: 20081215

REACTIONS (5)
  - CONVULSION [None]
  - DEPRESSION [None]
  - FATIGUE [None]
  - FIBROMYALGIA [None]
  - PAIN [None]
